FAERS Safety Report 4673120-4 (Version None)
Quarter: 2005Q2

REPORT INFORMATION
  Report Type: 
  Country: None (occurrence: None)
  Receive Date: 20050525
  Receipt Date: 20050512
  Transmission Date: 20051028
  Serious: Yes (Other)
  Sender: FDA-Public Use
  Company Number: DE-JNJFOC-20050503672

PATIENT
  Age: 77 Year
  Sex: Female

DRUGS (7)
  1. RISPERDAL [Suspect]
     Route: 049
  2. RISPERDAL [Suspect]
     Indication: DEPRESSION
     Route: 049
  3. HYPNOREX [Interacting]
     Indication: DRUG USE FOR UNKNOWN INDICATION
     Route: 049
  4. MIRTAZAPINE [Concomitant]
     Indication: DEPRESSION
     Route: 049
  5. LORAZEPAM [Concomitant]
     Route: 049
  6. NORTRILEN [Concomitant]
     Route: 049
  7. NORTRILEN [Concomitant]
     Route: 049

REACTIONS (3)
  - DRUG INTERACTION [None]
  - EXTRAPYRAMIDAL DISORDER [None]
  - PARKINSON'S DISEASE [None]
